FAERS Safety Report 17985452 (Version 3)
Quarter: 2021Q2

REPORT INFORMATION
  Report Type: Report from Study
  Country: US (occurrence: US)
  Receive Date: 20200706
  Receipt Date: 20210428
  Transmission Date: 20210717
  Serious: Yes (Hospitalization, Other)
  Sender: FDA-Public Use
  Company Number: US-SHIRE-US202007329

PATIENT
  Age: 60 Year
  Sex: Female

DRUGS (5)
  1. HUMAN IMMUNOGLOBULIN; HYALURONIDASE [Suspect]
     Active Substance: HUMAN IMMUNOGLOBULIN G\HYALURONIDASE RECOMBINANT HUMAN
     Indication: IMMUNODEFICIENCY COMMON VARIABLE
     Dosage: 30 GRAM, 1X A MONTH
     Route: 065
     Dates: start: 201606
  2. HUMAN IMMUNOGLOBULIN; HYALURONIDASE [Suspect]
     Active Substance: HUMAN IMMUNOGLOBULIN G\HYALURONIDASE RECOMBINANT HUMAN
     Dosage: 30 GRAM, 1X A MONTH
     Route: 065
  3. HUMAN IMMUNOGLOBULIN; HYALURONIDASE [Suspect]
     Active Substance: HUMAN IMMUNOGLOBULIN G\HYALURONIDASE RECOMBINANT HUMAN
     Dosage: 24 GRAM
     Route: 058
     Dates: start: 201910
  4. CELEBREX [Concomitant]
     Active Substance: CELECOXIB
     Indication: ARTHRITIS
  5. HIZENTRA [Concomitant]
     Active Substance: HUMAN IMMUNOGLOBULIN G
     Indication: PRODUCT USED FOR UNKNOWN INDICATION

REACTIONS (20)
  - Aortic aneurysm rupture [Unknown]
  - Diverticulitis [Unknown]
  - Pain in extremity [Unknown]
  - Fatigue [Unknown]
  - Meniscus injury [Unknown]
  - Neck mass [Unknown]
  - Vein rupture [Unknown]
  - Erythema [Recovering/Resolving]
  - Weight decreased [Unknown]
  - Respiratory tract infection [Unknown]
  - Influenza like illness [Unknown]
  - Infusion site rash [Unknown]
  - Adverse event [Recovering/Resolving]
  - Sinusitis [Unknown]
  - Arthritis [Recovering/Resolving]
  - Infusion site pruritus [Unknown]
  - Urinary tract infection [Unknown]
  - Hiatus hernia [Unknown]
  - Inappropriate schedule of product administration [Unknown]
  - Drug ineffective [Unknown]

NARRATIVE: CASE EVENT DATE: 201611
